FAERS Safety Report 9053882 (Version 2)
Quarter: 2013Q1

REPORT INFORMATION
  Report Type: Spontaneous
  Country: US (occurrence: US)
  Receive Date: 20130206
  Receipt Date: 20130218
  Transmission Date: 20140127
  Serious: Yes (Other)
  Sender: FDA-Public Use
  Company Number: US-ACCORD-016252

PATIENT
  Age: 10 Year
  Sex: Male
  Weight: 28 kg

DRUGS (4)
  1. AZATHIOPRINE [Concomitant]
     Indication: HEART TRANSPLANT
     Dosage: 100 MG DAILY, 3.6 MG/KG/DAY
  2. TACROLIMUS [Suspect]
     Indication: HEART TRANSPLANT
     Dosage: 0.04 MG/KG/DAY
  3. METHYLPREDNISOLONE [Concomitant]
     Indication: HEART TRANSPLANT
  4. PREDNISONE [Concomitant]
     Indication: HEART TRANSPLANT
     Dosage: STARTED WITH 1 MG/KG/DAY AND REACHED TO 0.8 MG/KG/DAY

REACTIONS (5)
  - Posterior reversible encephalopathy syndrome [Recovered/Resolved]
  - Cerebral haemorrhage [Unknown]
  - Subarachnoid haemorrhage [Unknown]
  - Speech disorder [Recovering/Resolving]
  - Hemiparesis [Unknown]
